FAERS Safety Report 17362129 (Version 1)
Quarter: 2020Q1

REPORT INFORMATION
  Report Type: Spontaneous
  Country: FR (occurrence: FR)
  Receive Date: 20200203
  Receipt Date: 20200203
  Transmission Date: 20200409
  Serious: Yes (Death)
  Sender: FDA-Public Use
  Company Number: FR-PFIZER INC-2020019989

PATIENT
  Age: 45 Year
  Sex: Male
  Weight: 83 kg

DRUGS (4)
  1. THIOTEPA. [Concomitant]
     Active Substance: THIOTEPA
     Dosage: UNK
     Dates: start: 2018
  2. BUSULFAN. [Concomitant]
     Active Substance: BUSULFAN
     Dosage: UNK
     Dates: start: 2018
  3. FLUDARABINE [Concomitant]
     Active Substance: FLUDARABINE PHOSPHATE
     Dosage: UNK
     Dates: start: 2018
  4. BESPONSA [Suspect]
     Active Substance: INOTUZUMAB OZOGAMICIN
     Indication: ACUTE LYMPHOCYTIC LEUKAEMIA
     Dosage: UNK
     Dates: start: 201806

REACTIONS (2)
  - Pulmonary alveolar haemorrhage [Fatal]
  - Neoplasm progression [Fatal]

NARRATIVE: CASE EVENT DATE: 20180905
